FAERS Safety Report 6749348-6 (Version None)
Quarter: 2010Q2

REPORT INFORMATION
  Report Type: 
  Country: None (occurrence: None)
  Receive Date: 20100601
  Receipt Date: 20100517
  Transmission Date: 20101027
  Serious: Yes (Other)
  Sender: FDA-Public Use
  Company Number: PL-ROCHE-696847

PATIENT
  Sex: Female
  Weight: 68 kg

DRUGS (2)
  1. BONIVA [Suspect]
     Indication: OSTEOPOROSIS
     Dosage: DOSE REPORTED AS 150.
     Route: 048
     Dates: start: 20090701, end: 20100104
  2. KAMIREN [Concomitant]
     Indication: HYPERTENSION
     Dosage: FREQUENCY REPORTED AS 1X1
     Route: 048

REACTIONS (1)
  - LEUKOPENIA [None]
